FAERS Safety Report 5705113-X (Version None)
Quarter: 2008Q2

REPORT INFORMATION
  Report Type: 
  Country: None (occurrence: None)
  Receive Date: 20080414
  Receipt Date: 20080407
  Transmission Date: 20081010
  Serious: Yes (Death, Other)
  Sender: FDA-Public Use
  Company Number: US-ABBOTT-07P-163-0427183-00

PATIENT
  Age: 47 Year
  Sex: Male
  Weight: 92.616 kg

DRUGS (1)
  1. ULTANE [Suspect]
     Indication: DRUG USE FOR UNKNOWN INDICATION
     Dosage: NOT REPORTED

REACTIONS (3)
  - ARRHYTHMIA [None]
  - DRUG ABUSE [None]
  - DRUG TOXICITY [None]
